FAERS Safety Report 23240926 (Version 9)
Quarter: 2025Q2

REPORT INFORMATION
  Report Type: Report from Study
  Country: ES (occurrence: ES)
  Receive Date: 20231129
  Receipt Date: 20250513
  Transmission Date: 20250716
  Serious: Yes (Hospitalization, Other)
  Sender: TAKEDA
  Company Number: ES-TAKEDA-2023TUS115347

PATIENT
  Age: 6 Year
  Sex: Male

DRUGS (10)
  1. TEDUGLUTIDE [Suspect]
     Active Substance: TEDUGLUTIDE
     Indication: Short-bowel syndrome
     Dosage: 0.25 MILLIGRAM, QD
     Dates: start: 20200804, end: 20220616
  2. TEDUGLUTIDE [Suspect]
     Active Substance: TEDUGLUTIDE
     Dosage: 0.5 MILLIGRAM, QD
     Dates: start: 20220616, end: 20230213
  3. TEDUGLUTIDE [Suspect]
     Active Substance: TEDUGLUTIDE
     Dosage: 0.6 MILLIGRAM, QD
     Dates: start: 20230213, end: 20240129
  4. TEDUGLUTIDE [Suspect]
     Active Substance: TEDUGLUTIDE
     Dosage: 0.7 MILLIGRAM, QD
     Dates: start: 20240129, end: 20240705
  5. TEDUGLUTIDE [Suspect]
     Active Substance: TEDUGLUTIDE
     Dosage: 0.7 MILLIGRAM, QD
     Dates: start: 20240819, end: 20241118
  6. TEDUGLUTIDE [Suspect]
     Active Substance: TEDUGLUTIDE
     Dosage: 0.8 MILLIGRAM, QD
     Dates: start: 20241118
  7. URSODIOL [Concomitant]
     Active Substance: URSODIOL
     Indication: Cholestasis
     Dosage: 80 MILLIGRAM, TID
     Dates: start: 20231016, end: 20240819
  8. VITAMIN D [Concomitant]
     Active Substance: VITAMIN D NOS
     Indication: Vitamin D deficiency
     Dosage: 1000 INTERNATIONAL UNIT, QD
     Dates: start: 20240129, end: 202405
  9. Ursocol [Concomitant]
     Indication: Cholelithiasis
     Dosage: 100 MILLIGRAM, TID
     Dates: start: 20240819
  10. CALCIFEDIOL [Concomitant]
     Active Substance: CALCIFEDIOL
     Indication: Vitamin D deficiency
     Dosage: 266 MICROGRAM, Q3WEEKS
     Dates: start: 20241118

REACTIONS (9)
  - Hypokalaemia [Recovered/Resolved]
  - Metabolic acidosis [Recovered/Resolved]
  - Biliary dilatation [Not Recovered/Not Resolved]
  - Bile duct stone [Recovered/Resolved]
  - Diarrhoea haemorrhagic [Recovered/Resolved]
  - Hypovitaminosis [Recovered/Resolved]
  - Iron deficiency [Recovered/Resolved]
  - Dehydration [Recovered/Resolved]
  - Upper respiratory tract infection [Recovered/Resolved]

NARRATIVE: CASE EVENT DATE: 20231016
